FAERS Safety Report 6946554-2 (Version None)
Quarter: 2010Q3

REPORT INFORMATION
  Report Type: 
  Country: None (occurrence: None)
  Receive Date: 20100824
  Receipt Date: 20100819
  Transmission Date: 20110219
  Serious: Yes (Other)
  Sender: FDA-Public Use
  Company Number: 20108420

PATIENT
  Sex: Female

DRUGS (1)
  1. LIORESAL [Suspect]
     Indication: MUSCLE SPASTICITY
     Dosage: 599.2 MCG, DAILY, INTRATHECAL
     Route: 037

REACTIONS (5)
  - DEVICE MATERIAL ISSUE [None]
  - DEVICE POWER SOURCE ISSUE [None]
  - DRUG WITHDRAWAL SYNDROME [None]
  - IRRITABILITY [None]
  - MUSCULOSKELETAL STIFFNESS [None]
